FAERS Safety Report 6649537-5 (Version None)
Quarter: 2010Q1

REPORT INFORMATION
  Report Type: 
  Country: None (occurrence: None)
  Receive Date: 20100324
  Receipt Date: 20100316
  Transmission Date: 20100710
  Serious: Yes (Hospitalization)
  Sender: FDA-Public Use
  Company Number: GB-ABBOTT-09P-167-0580804-00

PATIENT
  Sex: Female

DRUGS (2)
  1. EPILIM CHRONO TABLETS [Suspect]
     Indication: EPILEPSY
     Route: 048
     Dates: start: 20090602, end: 20090608
  2. SALBUTAMOL [Concomitant]
     Indication: ASTHMA

REACTIONS (8)
  - DECREASED APPETITE [None]
  - DROOLING [None]
  - DYSARTHRIA [None]
  - HEADACHE [None]
  - HYPERAMMONAEMIA [None]
  - LETHARGY [None]
  - METABOLIC ENCEPHALOPATHY [None]
  - NAUSEA [None]
